FAERS Safety Report 10956052 (Version 2)
Quarter: 2015Q2

REPORT INFORMATION
  Report Type: Spontaneous
  Country: US (occurrence: US)
  Receive Date: 20150326
  Receipt Date: 20150526
  Transmission Date: 20150821
  Serious: No
  Sender: FDA-Public Use
  Company Number: US-JNJFOC-20110606359

PATIENT
  Age: 58 Year
  Sex: Male
  Weight: 77.11 kg

DRUGS (1)
  1. INTELENCE [Suspect]
     Active Substance: ETRAVIRINE
     Indication: HIV INFECTION
     Route: 048
     Dates: start: 201103

REACTIONS (4)
  - Wrong technique in drug usage process [Unknown]
  - Choking [Unknown]
  - Foreign body [Not Recovered/Not Resolved]
  - Regurgitation [Unknown]

NARRATIVE: CASE EVENT DATE: 201103
